FAERS Safety Report 6846772-8 (Version None)
Quarter: 2010Q3

REPORT INFORMATION
  Report Type: 
  Country: None (occurrence: None)
  Receive Date: 20100715
  Receipt Date: 20070920
  Transmission Date: 20110219
  Serious: No
  Sender: FDA-Public Use
  Company Number: US-PFIZER INC-2007080167

PATIENT
  Sex: Male
  Weight: 133.4 kg

DRUGS (17)
  1. CHANTIX [Suspect]
     Indication: SMOKING CESSATION THERAPY
     Dates: start: 20070901, end: 20070901
  2. ACETYLSALICYLIC ACID [Concomitant]
  3. PAXIL [Concomitant]
  4. VALPROATE SODIUM [Concomitant]
  5. RISPERDAL [Concomitant]
  6. RANITIDINE [Concomitant]
  7. LIPITOR [Concomitant]
  8. FOLIC ACID [Concomitant]
  9. PROTONIX [Concomitant]
  10. FUROSEMIDE [Concomitant]
     Indication: OEDEMA PERIPHERAL
  11. VALSARTAN [Concomitant]
  12. ALL OTHER THERAPEUTIC PRODUCTS [Concomitant]
  13. NEURONTIN [Concomitant]
  14. INSULIN LISPRO [Concomitant]
  15. INSULIN GLARGINE [Concomitant]
     Dosage: 35 UNITS
  16. SPIRIVA [Concomitant]
     Indication: EMPHYSEMA
     Route: 055
  17. ADVAIR DISKUS 100/50 [Concomitant]
     Indication: EMPHYSEMA
     Route: 055

REACTIONS (1)
  - CONSTIPATION [None]
